FAERS Safety Report 13281300 (Version 1)
Quarter: 2017Q1

REPORT INFORMATION
  Report Type: Spontaneous
  Country: US (occurrence: US)
  Receive Date: 20170228
  Receipt Date: 20170228
  Transmission Date: 20170428
  Serious: Yes (Other)
  Sender: FDA-Public Use
  Company Number: None

PATIENT
  Age: 83 Year
  Sex: Female
  Weight: 73.8 kg

DRUGS (5)
  1. ZINC. [Concomitant]
     Active Substance: ZINC
  2. 5 FLOUROURACIO [Suspect]
     Active Substance: FLUOROURACIL
     Indication: ACTINIC KERATOSIS
     Dosage: QUANTITY:1 TUBE;?
     Route: 061
     Dates: start: 20170216, end: 20170219
  3. (FLORAJEN3) [Concomitant]
  4. VITAMIN D3 [Concomitant]
     Active Substance: CHOLECALCIFEROL
  5. VITAMIN B12 [Concomitant]
     Active Substance: CYANOCOBALAMIN

REACTIONS (8)
  - Headache [None]
  - Dysgeusia [None]
  - Hypertension [None]
  - Malaise [None]
  - Nausea [None]
  - Anxiety [None]
  - Depression [None]
  - Cheilitis [None]

NARRATIVE: CASE EVENT DATE: 20170219
